FAERS Safety Report 8954926 (Version 3)
Quarter: 2013Q2

REPORT INFORMATION
  Report Type: Spontaneous
  Country: ES (occurrence: ES)
  Receive Date: 20121210
  Receipt Date: 20130510
  Transmission Date: 20140414
  Serious: Yes (Life-Threatening, Hospitalization)
  Sender: FDA-Public Use
  Company Number: ES-RANBAXY-2012US-63082

PATIENT
  Age: 66 Year
  Sex: Male

DRUGS (13)
  1. ATORVASTATIN [Suspect]
     Indication: PRODUCT USED FOR UNKNOWN INDICATION
     Dosage: 80 MG/DAY
     Route: 065
     Dates: start: 20121105
  2. BISOPROLOL [Suspect]
     Indication: PRODUCT USED FOR UNKNOWN INDICATION
     Dosage: 50 MG AT ONCE
     Route: 065
     Dates: start: 20121105
  3. CILOSTAZOL [Suspect]
     Indication: PRODUCT USED FOR UNKNOWN INDICATION
     Dosage: 2.8 G AT ONCE
     Route: 065
     Dates: start: 20121105
  4. PANTOPRAZOLE [Suspect]
     Indication: PRODUCT USED FOR UNKNOWN INDICATION
     Dosage: 280 MG/DAY
     Route: 065
     Dates: start: 20121105
  5. LIBERTEK [Suspect]
     Indication: CHRONIC OBSTRUCTIVE PULMONARY DISEASE
     Dosage: 500 ?G, QD
     Route: 065
     Dates: start: 201211
  6. LIBERTEK [Suspect]
     Indication: PRODUCT USED FOR UNKNOWN INDICATION
     Dosage: 500 ?G, BID
     Route: 065
     Dates: start: 201211
  7. TRANXILIUM [Suspect]
     Indication: PRODUCT USED FOR UNKNOWN INDICATION
     Dosage: 60 MG AT ONCE
     Route: 065
     Dates: start: 20121105
  8. TORASEMIDE [Suspect]
     Indication: PRODUCT USED FOR UNKNOWN INDICATION
     Dosage: 150 MG AT ONCE
     Route: 065
     Dates: start: 20121105
  9. ADIRO [Suspect]
     Indication: PRODUCT USED FOR UNKNOWN INDICATION
     Dosage: 600 MG AT ONCE
     Route: 065
     Dates: start: 20121105
  10. NOLOTIL /SPA/ [Suspect]
     Indication: PRODUCT USED FOR UNKNOWN INDICATION
     Dosage: 7 DF AT ONCE
     Route: 065
     Dates: start: 20121105
  11. ATROVENT [Concomitant]
     Indication: CHRONIC OBSTRUCTIVE PULMONARY DISEASE
     Dosage: 9 PUFFS, TID
     Route: 005
  12. PLUSVENT [Concomitant]
     Indication: CHRONIC OBSTRUCTIVE PULMONARY DISEASE
     Dosage: 4 DF, BID
     Route: 065
  13. SALBUTAMOL [Concomitant]
     Indication: CHRONIC OBSTRUCTIVE PULMONARY DISEASE
     Dosage: 1 DF/DAY AS REQUIRED
     Route: 065

REACTIONS (6)
  - Drug administration error [Unknown]
  - Suicide attempt [Unknown]
  - Depression [Unknown]
  - Intentional overdose [Unknown]
  - Confusional state [Unknown]
  - Hypotension [Unknown]
